FAERS Safety Report 7637940-6 (Version None)
Quarter: 2011Q3

REPORT INFORMATION
  Report Type: 
  Country: None (occurrence: None)
  Receive Date: 20110727
  Receipt Date: 20110715
  Transmission Date: 20111222
  Serious: Yes (Hospitalization, Other)
  Sender: FDA-Public Use
  Company Number: US-BAYER-201035219NA

PATIENT
  Age: 41 Year
  Sex: Female
  Weight: 75.737 kg

DRUGS (6)
  1. INHALER (NOS) [Concomitant]
  2. ZITHROMAX [Concomitant]
  3. COUGH SYRUP [Concomitant]
  4. VICODIN [Concomitant]
  5. TAMIFLU [Concomitant]
  6. YASMIN [Suspect]
     Indication: DYSMENORRHOEA
     Dosage: UNK
     Dates: start: 20011201, end: 20020201

REACTIONS (2)
  - HEADACHE [None]
  - PULMONARY EMBOLISM [None]
